FAERS Safety Report 6052778-1 (Version None)
Quarter: 2009Q1

REPORT INFORMATION
  Report Type: 
  Country: None (occurrence: None)
  Receive Date: 20090121
  Receipt Date: 20090109
  Transmission Date: 20090719
  Serious: Yes (Other)
  Sender: FDA-Public Use
  Company Number: 2008US002962

PATIENT
  Age: 91 Year
  Sex: Female

DRUGS (6)
  1. LEXISCAN [Suspect]
     Indication: SCAN MYOCARDIAL PERFUSION
     Dosage: 0.4 MG, UID/QD, IV NOS
     Route: 042
     Dates: start: 20080813, end: 20080813
  2. LOVASTATIN [Concomitant]
  3. ASPIRIN (CITRIC ACID) [Concomitant]
  4. FOSAMAX [Concomitant]
  5. LISINOPRIL (LISINOPRIL DIHYDRATE) [Concomitant]
  6. CELEBREX [Concomitant]

REACTIONS (8)
  - ANXIETY [None]
  - CRYING [None]
  - DIZZINESS [None]
  - FEELING ABNORMAL [None]
  - HYPERVENTILATION [None]
  - HYPOAESTHESIA [None]
  - MUSCULOSKELETAL STIFFNESS [None]
  - PARAESTHESIA [None]
